FAERS Safety Report 9785637 (Version 2)
Quarter: 2014Q1

REPORT INFORMATION
  Report Type: Report from Study
  Country: US (occurrence: US)
  Receive Date: 20131227
  Receipt Date: 20140102
  Transmission Date: 20141002
  Serious: Yes (Hospitalization, Other)
  Sender: FDA-Public Use
  Company Number: US-BAYER-2013-156986

PATIENT
  Age: 54 Year
  Sex: Male

DRUGS (3)
  1. BETASERON [Suspect]
     Indication: RELAPSING-REMITTING MULTIPLE SCLEROSIS
     Dosage: 8 MIU, QOD
     Route: 058
     Dates: start: 20020326, end: 20131220
  2. SEPTRA [Concomitant]
  3. PERCOCET [Concomitant]

REACTIONS (6)
  - Injection site cellulitis [Not Recovered/Not Resolved]
  - Injection site inflammation [Not Recovered/Not Resolved]
  - Poor quality sleep [Not Recovered/Not Resolved]
  - Folliculitis [Recovered/Resolved]
  - Injection site infection [Not Recovered/Not Resolved]
  - Platelet count decreased [Not Recovered/Not Resolved]
